FAERS Safety Report 10215694 (Version 1)
Quarter: 2014Q2

REPORT INFORMATION
  Report Type: Spontaneous
  Country: US (occurrence: None)
  Receive Date: 20140603
  Receipt Date: 20140603
  Transmission Date: 20141212
  Serious: Yes (Hospitalization)
  Sender: FDA-Public Use
  Company Number: None

PATIENT
  Age: 81 Year
  Sex: Male

DRUGS (17)
  1. TAFINLAR 50 MG GLAXOSMITHKLINE LLC [Suspect]
     Indication: MALIGNANT MELANOMA
     Route: 048
     Dates: start: 20140504
  2. TAFINLAR 50 MG GLAXOSMITHKLINE LLC [Suspect]
     Indication: BRAIN NEOPLASM MALIGNANT
     Route: 048
     Dates: start: 20140504
  3. TAFINLAR 50 MG GLAXOSMITHKLINE LLC [Suspect]
     Indication: MALIGNANT NEOPLASM OF SPINAL CORD
     Route: 048
     Dates: start: 20140504
  4. MEKINIST 2 MG GLAXOSMITHKLINE LLC [Suspect]
     Route: 048
     Dates: start: 20140504
  5. CALCIUM [Concomitant]
  6. CRESTOR [Concomitant]
  7. ALLOPURINOL [Concomitant]
  8. COLCRYS [Concomitant]
  9. SOTALOL [Concomitant]
  10. ASPIRIN [Concomitant]
  11. AMLODIPINE BESYLATE [Concomitant]
  12. BENAZEPRIL HCL [Concomitant]
  13. HYDROCLORITHIAZIDE [Concomitant]
  14. KETAPENA [Concomitant]
  15. NYSTATIN [Concomitant]
  16. POLYETHYLENE GLYCOL [Concomitant]
  17. DOCULAX [Concomitant]

REACTIONS (3)
  - Fatigue [None]
  - Asthenia [None]
  - Cyst [None]
